FAERS Safety Report 5994971-X (Version None)
Quarter: 2008Q4

REPORT INFORMATION
  Report Type: 
  Country: None (occurrence: None)
  Receive Date: 20081209
  Receipt Date: 20080828
  Transmission Date: 20090506
  Serious: No
  Sender: FDA-Public Use
  Company Number: 002#2#2008-00651

PATIENT
  Age: 70 Year
  Sex: Male
  Weight: 85.2762 kg

DRUGS (3)
  1. NEUPRO [Suspect]
     Indication: PARKINSON'S DISEASE
     Dosage: 6MG/24H,1 IN 1 D,TRANSDERMAL
     Route: 062
     Dates: start: 20070101
  2. SINEMET [Concomitant]
  3. MAO INHIBITOR [Concomitant]

REACTIONS (2)
  - PRODUCT QUALITY ISSUE [None]
  - TREMOR [None]
